FAERS Safety Report 7877458-9 (Version None)
Quarter: 2011Q4

REPORT INFORMATION
  Report Type: 
  Country: None (occurrence: None)
  Receive Date: 20111031
  Receipt Date: 20111025
  Transmission Date: 20120403
  Serious: Yes (Other)
  Sender: FDA-Public Use
  Company Number: US-PFIZER INC-2011209275

PATIENT
  Age: 80 Year
  Sex: Female

DRUGS (2)
  1. TOPROL-XL [Interacting]
     Indication: CARDIAC DISORDER
     Dosage: 50 MG, UNK
  2. CELEBREX [Suspect]
     Indication: ARTHRITIS
     Dosage: 200 MG, UNK

REACTIONS (5)
  - KNEE OPERATION [None]
  - HEART RATE INCREASED [None]
  - ARTHRALGIA [None]
  - DRUG INTERACTION [None]
  - MALAISE [None]
